FAERS Safety Report 7732100-2 (Version None)
Quarter: 2011Q3

REPORT INFORMATION
  Report Type: 
  Country: None (occurrence: None)
  Receive Date: 20110906
  Receipt Date: 20110804
  Transmission Date: 20111222
  Serious: No
  Sender: FDA-Public Use
  Company Number: US-AMGEN-USASP2011039605

PATIENT
  Age: 77 Year
  Sex: Female

DRUGS (9)
  1. OSCAL D                            /06435501/ [Concomitant]
     Dosage: 1 UNK, UNK
  2. HYDROCHLOROTHIAZIDE [Concomitant]
     Dosage: UNK UNK, QD
  3. VENLAFAXINE HYDROCHLORIDE [Concomitant]
     Dosage: 1 UNK, UNK
  4. PROLIA [Suspect]
     Indication: OSTEOPOROSIS POSTMENOPAUSAL
     Dosage: 60 MG, Q6MO
     Dates: start: 20110301
  5. CENTRUM SILVER                     /01292501/ [Concomitant]
  6. B12                                /00056201/ [Concomitant]
  7. OMEPRAZOLE [Concomitant]
     Dosage: 1 UNK, UNK
  8. MOTRIN [Concomitant]
     Dosage: UNK UNK, PRN
  9. OSTEO BI-FLEX [Concomitant]
     Dosage: 1 UNK, UNK

REACTIONS (2)
  - JOINT CREPITATION [None]
  - ARTIFICIAL CROWN PROCEDURE [None]
